FAERS Safety Report 17518996 (Version 1)
Quarter: 2020Q1

REPORT INFORMATION
  Report Type: Spontaneous
  Country: FR (occurrence: FR)
  Receive Date: 20200310
  Receipt Date: 20200310
  Transmission Date: 20200409
  Serious: Yes (Other)
  Sender: FDA-Public Use
  Company Number: FR-AUROBINDO-AUR-APL-2020-011413

PATIENT
  Age: 43 Year
  Sex: Male
  Weight: 80 kg

DRUGS (4)
  1. ALCOHOL. [Suspect]
     Active Substance: ALCOHOL
     Indication: PRODUCT USED FOR UNKNOWN INDICATION
     Dosage: UNK
     Route: 048
     Dates: start: 20200125, end: 20200125
  2. ACTISKENAN [Suspect]
     Active Substance: MORPHINE SULFATE
     Indication: PRODUCT USED FOR UNKNOWN INDICATION
     Dosage: 10 DOSAGE FORM, ONCE A DAY
     Route: 048
     Dates: start: 20200125, end: 20200125
  3. TRAMADOL 100MG [Suspect]
     Active Substance: TRAMADOL
     Indication: PRODUCT USED FOR UNKNOWN INDICATION
     Dosage: 1 DOSAGE FORM, ONCE A DAY
     Route: 048
     Dates: start: 20200125, end: 20200125
  4. ACUPAN [Suspect]
     Active Substance: NEFOPAM HYDROCHLORIDE
     Indication: PRODUCT USED FOR UNKNOWN INDICATION
     Dosage: 1 DOSAGE FORM, ONCE A DAY
     Route: 065
     Dates: start: 20200125, end: 20200125

REACTIONS (1)
  - Drug abuse [Not Recovered/Not Resolved]

NARRATIVE: CASE EVENT DATE: 20200125
